FAERS Safety Report 5740473-5 (Version None)
Quarter: 2008Q2

REPORT INFORMATION
  Report Type: 
  Country: None (occurrence: None)
  Receive Date: 20080516
  Receipt Date: 20080507
  Transmission Date: 20081010
  Serious: Yes (Hospitalization, Other)
  Sender: FDA-Public Use
  Company Number: AT-ASTRAZENECA-2008PK00981

PATIENT
  Age: 467 Month
  Sex: Female
  Weight: 74 kg

DRUGS (3)
  1. ARIMIDEX [Suspect]
     Indication: BREAST CANCER
     Route: 048
     Dates: start: 20060315
  2. ZOLADEX [Suspect]
     Indication: BREAST CANCER
     Route: 058
     Dates: start: 20060301
  3. ZOMETA [Suspect]
     Indication: BREAST CANCER
     Dates: start: 20060315

REACTIONS (1)
  - METRORRHAGIA [None]
